FAERS Safety Report 4989690-2 (Version None)
Quarter: 2006Q2

REPORT INFORMATION
  Report Type: 
  Country: None (occurrence: None)
  Receive Date: 20060501
  Receipt Date: 20060413
  Transmission Date: 20061013
  Serious: Yes (Death)
  Sender: FDA-Public Use
  Company Number: 163-20785-04030313

PATIENT
  Age: 65 Year
  Sex: Female

DRUGS (1)
  1. THALOMID [Suspect]
     Indication: GLIOBLASTOMA
     Dosage: 100 MG, QD, ORAL
     Route: 048
     Dates: start: 20030903

REACTIONS (2)
  - DISEASE PROGRESSION [None]
  - GLIOBLASTOMA [None]
